FAERS Safety Report 23953840 (Version 1)
Quarter: 2024Q2

REPORT INFORMATION
  Report Type: Report from Study
  Country: US (occurrence: US)
  Receive Date: 20240609
  Receipt Date: 20240609
  Transmission Date: 20240716
  Serious: Yes (Hospitalization)
  Sender: FDA-Public Use
  Company Number: US-JNJFOC-20240611673

PATIENT
  Age: 21 Year
  Sex: Female

DRUGS (2)
  1. SPRAVATO [Suspect]
     Active Substance: ESKETAMINE
     Indication: Depression
     Dosage: ^84MG, 23 TOTAL DOSES
     Dates: start: 20231003, end: 20240409
  2. SPRAVATO [Suspect]
     Active Substance: ESKETAMINE
     Dosage: ^84MG, 1 TOTAL DOSES
     Dates: start: 20240604, end: 20240604

REACTIONS (1)
  - Suicidal ideation [Recovered/Resolved]

NARRATIVE: CASE EVENT DATE: 20240421
